FAERS Safety Report 17527037 (Version 2)
Quarter: 2020Q2

REPORT INFORMATION
  Report Type: Spontaneous
  Country: JP (occurrence: JP)
  Receive Date: 20200310
  Receipt Date: 20200415
  Transmission Date: 20200713
  Serious: Yes (Other)
  Sender: FDA-Public Use
  Company Number: JP-DSJP-DSJ-2020-107759AA

PATIENT

DRUGS (6)
  1. LIXIANA TABLETS [Suspect]
     Active Substance: EDOXABAN TOSYLATE
     Indication: HIP ARTHROPLASTY
     Dosage: 15 MG, QD
     Route: 048
     Dates: start: 20200227, end: 20200303
  2. LANDSEN [Concomitant]
     Active Substance: CLONAZEPAM
     Dosage: 1 MG, QD
     Route: 048
  3. E KEPPRA [Concomitant]
     Active Substance: LEVETIRACETAM
     Dosage: 500 MG, BID
     Route: 048
  4. EXCEGRAN [Concomitant]
     Active Substance: ZONISAMIDE
     Dosage: 0.25 G, BID
     Route: 048
  5. LEPRINTON [Concomitant]
     Active Substance: CARBIDOPA\LEVODOPA
     Dosage: 50 MG, TID
     Route: 048
  6. CELECOX [Suspect]
     Active Substance: CELECOXIB
     Dosage: 100 MG, BID
     Route: 048
     Dates: start: 20200227, end: 20200304

REACTIONS (1)
  - Epilepsy [Not Recovered/Not Resolved]

NARRATIVE: CASE EVENT DATE: 20200301
